FAERS Safety Report 7096378-3 (Version None)
Quarter: 2010Q4

REPORT INFORMATION
  Report Type: 
  Country: None (occurrence: None)
  Receive Date: 20101111
  Receipt Date: 20100903
  Transmission Date: 20110411
  Serious: Yes (Hospitalization)
  Sender: FDA-Public Use
  Company Number: US-BRISTOL-MYERS SQUIBB COMPANY-15269608

PATIENT
  Age: 56 Year
  Sex: Female

DRUGS (3)
  1. IXEMPRA KIT [Suspect]
     Indication: BREAST CANCER METASTATIC
     Dosage: FIRST MONOTHERAPY INFUSION
     Dates: start: 20100806
  2. XELODA [Suspect]
     Indication: BREAST CANCER METASTATIC
     Dates: start: 20100801
  3. LOVENOX [Concomitant]

REACTIONS (1)
  - NEUTROPENIC SEPSIS [None]
